FAERS Safety Report 4497268-2 (Version None)
Quarter: 2004Q4

REPORT INFORMATION
  Report Type: 
  Country: None (occurrence: None)
  Receive Date: 20041104
  Receipt Date: 20041021
  Transmission Date: 20050328
  Serious: Yes (Other)
  Sender: FDA-Public Use
  Company Number: 240014

PATIENT
  Age: 38 Year
  Sex: Male

DRUGS (2)
  1. HUMAN MIXTARD 30 HM (GE)  (INSULIN HUMAN) [Suspect]
     Indication: DIABETES MELLITUS
     Dosage: 32 IU, BID, SUBCUTANEOUS
     Route: 058
     Dates: start: 19950101
  2. ACTRAPID (INSULIN HUMAN) [Concomitant]

REACTIONS (2)
  - AMYLOIDOSIS [None]
  - INJECTION SITE REACTION [None]
